FAERS Safety Report 12654322 (Version 1)
Quarter: 2016Q3

REPORT INFORMATION
  Report Type: Spontaneous
  Country: US (occurrence: None)
  Receive Date: 20160815
  Receipt Date: 20160815
  Transmission Date: 20161109
  Serious: Yes (Other)
  Sender: FDA-Public Use
  Company Number: None

PATIENT
  Age: 62 Year
  Sex: Male
  Weight: 65.77 kg

DRUGS (5)
  1. LEVOFLOXACIN, 500 MG AUROBINDO PHARMACY [Suspect]
     Active Substance: LEVOFLOXACIN
     Indication: SPERMATOCELE
     Route: 048
     Dates: start: 20160606, end: 20160617
  2. LEVOTHYROXINE. [Concomitant]
     Active Substance: LEVOTHYROXINE
  3. PRAVASTATIN. [Concomitant]
     Active Substance: PRAVASTATIN
  4. VITAMIN D3 [Concomitant]
     Active Substance: CHOLECALCIFEROL
  5. SAW PALMETTO [Concomitant]
     Active Substance: SAW PALMETTO

REACTIONS (1)
  - Myalgia [None]

NARRATIVE: CASE EVENT DATE: 20160606
